FAERS Safety Report 7468037-6 (Version None)
Quarter: 2011Q2

REPORT INFORMATION
  Report Type: 
  Country: None (occurrence: None)
  Receive Date: 20110509
  Receipt Date: 20110311
  Transmission Date: 20111010
  Serious: No
  Sender: FDA-Public Use
  Company Number: US-ALEXION-A201100338

PATIENT
  Sex: Female
  Weight: 42.9 kg

DRUGS (4)
  1. SOLIRIS [Suspect]
     Indication: HAEMOLYTIC URAEMIC SYNDROME
     Dosage: 900 MG, QW
     Route: 042
     Dates: start: 20101007, end: 20101104
  2. SOLIRIS [Suspect]
     Dosage: 900 MG, Q2W
     Route: 042
     Dates: start: 20101101, end: 20110101
  3. CELL CEPT [Concomitant]
     Indication: IMMUNOSUPPRESSANT DRUG THERAPY
  4. SOLIRIS [Suspect]
     Dosage: 1200 MG, Q2W
     Route: 042
     Dates: start: 20110210

REACTIONS (1)
  - ANAEMIA [None]
